FAERS Safety Report 6314138-5 (Version None)
Quarter: 2009Q3

REPORT INFORMATION
  Report Type: 
  Country: None (occurrence: None)
  Receive Date: 20090817
  Receipt Date: 20090807
  Transmission Date: 20100115
  Serious: Yes (Hospitalization)
  Sender: FDA-Public Use
  Company Number: 2009002123

PATIENT
  Age: 47 Year
  Sex: Female
  Weight: 50 kg

DRUGS (4)
  1. ERLOTINIB            (ERLOTINIB) [Suspect]
     Indication: NON-SMALL CELL LUNG CANCER
     Dosage: ORAL
     Route: 048
     Dates: start: 20090518, end: 20090702
  2. BEVACIZUMAB        (INJECTION FOR INFUSION) [Suspect]
     Indication: NON-SMALL CELL LUNG CANCER
     Dosage: 100 MG, INTRAVENOUS
     Route: 042
  3. CARBOPLATIN [Suspect]
     Indication: NON-SMALL CELL LUNG CANCER
     Dosage: 2 AUC, QW, INTRAVENOUS
     Route: 042
     Dates: start: 20090518
  4. PACLITAXEL [Suspect]
     Indication: NON-SMALL CELL LUNG CANCER
     Dosage: 45 MG/M2, INTRAVENOUS
     Route: 042
     Dates: start: 20090518

REACTIONS (6)
  - BLOOD CALCIUM DECREASED [None]
  - BLOOD MAGNESIUM DECREASED [None]
  - BLOOD POTASSIUM DECREASED [None]
  - HYPOVOLAEMIA [None]
  - OESOPHAGITIS [None]
  - WHITE BLOOD CELL COUNT DECREASED [None]
